FAERS Safety Report 5009010-7 (Version None)
Quarter: 2006Q2

REPORT INFORMATION
  Report Type: 
  Country: None (occurrence: None)
  Receive Date: 20060404
  Receipt Date: 20051109
  Transmission Date: 20061013
  Serious: No
  Sender: FDA-Public Use
  Company Number: US200511000425

PATIENT
  Age: 62 Year
  Sex: Female

DRUGS (2)
  1. CYMBALTA [Suspect]
     Indication: BIPOLAR DISORDER
     Dosage: 60 MG, DAILY (1/D), ORAL
     Route: 048
     Dates: start: 20050901
  2. ZOLOFT [Concomitant]

REACTIONS (3)
  - CRYING [None]
  - DEPRESSION [None]
  - DIARRHOEA [None]
